FAERS Safety Report 6025586-5 (Version None)
Quarter: 2008Q4

REPORT INFORMATION
  Report Type: 
  Country: None (occurrence: None)
  Receive Date: 20081231
  Receipt Date: 20081217
  Transmission Date: 20090506
  Serious: Yes (Other)
  Sender: FDA-Public Use
  Company Number: GB-GENENTECH-274679

PATIENT
  Sex: Female

DRUGS (2)
  1. MABTHERA [Suspect]
     Indication: RHEUMATOID ARTHRITIS
     Dosage: UNK
  2. STEROIDS (UNK INGREDIENTS) [Concomitant]
     Indication: RHEUMATOID ARTHRITIS

REACTIONS (1)
  - PLATELET COUNT DECREASED [None]
